FAERS Safety Report 10062153 (Version 1)
Quarter: 2014Q2

REPORT INFORMATION
  Report Type: Spontaneous
  Country: US (occurrence: None)
  Receive Date: 20140404
  Receipt Date: 20140404
  Transmission Date: 20141212
  Serious: No
  Sender: FDA-Public Use
  Company Number: None

PATIENT
  Age: 69 Year
  Sex: Female

DRUGS (2)
  1. NEUPOGEN PFS 300MCG AMGEN [Suspect]
     Indication: NEUTROPENIA
     Route: 058
     Dates: start: 20140321, end: 20140403
  2. NEUPOGEN PFS 300MCG AMGEN [Suspect]
     Indication: CHEMOTHERAPY
     Route: 058
     Dates: start: 20140321, end: 20140403

REACTIONS (2)
  - Muscle spasms [None]
  - Heart rate increased [None]
